FAERS Safety Report 9380174 (Version 2)
Quarter: 2013Q3

REPORT INFORMATION
  Report Type: Spontaneous
  Country: JP (occurrence: JP)
  Receive Date: 20130702
  Receipt Date: 20130807
  Transmission Date: 20140515
  Serious: Yes (Hospitalization)
  Sender: FDA-Public Use
  Company Number: JP-ASTRAZENECA-2013SE49013

PATIENT
  Age: 70 Year
  Sex: Female

DRUGS (2)
  1. CRESTOR [Suspect]
     Indication: HYPERCHOLESTEROLAEMIA
     Route: 048
     Dates: start: 20130403, end: 20130602
  2. OLMETEC [Concomitant]
     Route: 048
     Dates: start: 2012

REACTIONS (3)
  - Red blood cell count decreased [Unknown]
  - Acute leukaemia [Unknown]
  - Platelet count decreased [Unknown]
